FAERS Safety Report 9323578 (Version 10)
Quarter: 2014Q1

REPORT INFORMATION
  Report Type: Spontaneous
  Country: CA (occurrence: CA)
  Receive Date: 20130603
  Receipt Date: 20140108
  Transmission Date: 20141002
  Serious: Yes (Hospitalization, Disabling, Other)
  Sender: FDA-Public Use
  Company Number: CA-ROCHE-1230950

PATIENT
  Age: 24 Year
  Sex: Female

DRUGS (15)
  1. XOLAIR [Suspect]
     Indication: ASTHMA
     Route: 058
     Dates: start: 20130419
  2. XOLAIR [Suspect]
     Route: 058
     Dates: start: 20130502
  3. XOLAIR [Suspect]
     Route: 058
     Dates: start: 20130517
  4. XOLAIR [Suspect]
     Route: 058
     Dates: start: 20130610
  5. XOLAIR [Suspect]
     Route: 058
     Dates: start: 20130624
  6. XOLAIR [Suspect]
     Route: 065
     Dates: start: 20130805
  7. VENTOLIN [Concomitant]
     Route: 065
  8. ADVAIR [Concomitant]
     Route: 065
  9. ATROVENT [Concomitant]
     Route: 065
  10. PREDNISONE [Concomitant]
     Dosage: 100 MG DIE
     Route: 065
     Dates: start: 201306
  11. GLUCOPHAGE [Concomitant]
     Route: 065
  12. NEXIUM [Concomitant]
     Route: 065
  13. ZANTAC [Concomitant]
     Route: 065
  14. ALVESCO [Concomitant]
     Route: 065
  15. SINGULAIR [Concomitant]
     Route: 065

REACTIONS (9)
  - Asthma [Unknown]
  - Vomiting [Recovered/Resolved with Sequelae]
  - Rhinorrhoea [Recovered/Resolved with Sequelae]
  - Fatigue [Recovered/Resolved with Sequelae]
  - Disturbance in attention [Unknown]
  - Nausea [Unknown]
  - Muscle strain [Unknown]
  - Dyspnoea [Recovered/Resolved with Sequelae]
  - Speech disorder [Unknown]
